FAERS Safety Report 20216527 (Version 1)
Quarter: 2021Q4

REPORT INFORMATION
  Report Type: Spontaneous
  Country: JP (occurrence: JP)
  Receive Date: 20211222
  Receipt Date: 20211222
  Transmission Date: 20220303
  Serious: Yes (Other)
  Sender: FDA-Public Use
  Company Number: JP-BAYER-2018-177428

PATIENT
  Age: 60 Year
  Sex: Male

DRUGS (7)
  1. XOFIGO [Suspect]
     Active Substance: RADIUM RA-223 DICHLORIDE
     Indication: Hormone-refractory prostate cancer
     Dosage: 55 MBQ/KG, ONCE A MONTH, COMPLETED TOTAL 6 CYCLE
     Dates: start: 20170720, end: 20171207
  2. XOFIGO [Suspect]
     Active Substance: RADIUM RA-223 DICHLORIDE
     Indication: Metastasis
  3. ETHINYL ESTRADIOL [Suspect]
     Active Substance: ETHINYL ESTRADIOL
     Indication: Hormone-refractory prostate cancer
     Dosage: UNK
     Dates: start: 201112, end: 20160713
  4. ETHINYL ESTRADIOL [Suspect]
     Active Substance: ETHINYL ESTRADIOL
     Indication: Metastasis
  5. PREDONINE [Suspect]
     Active Substance: PREDNISOLONE
     Indication: Hormone-refractory prostate cancer
     Dosage: UNK
     Dates: start: 20180105
  6. PREDONINE [Suspect]
     Active Substance: PREDNISOLONE
     Indication: Metastasis
  7. ABIRATERONE ACETATE [Concomitant]
     Active Substance: ABIRATERONE ACETATE

REACTIONS (3)
  - Spinal compression fracture [Recovered/Resolved with Sequelae]
  - Osteoporosis [None]
  - Back pain [Recovered/Resolved with Sequelae]

NARRATIVE: CASE EVENT DATE: 20180101
